FAERS Safety Report 16707810 (Version 3)
Quarter: 2025Q3

REPORT INFORMATION
  Report Type: Spontaneous
  Country: US (occurrence: US)
  Receive Date: 20190815
  Receipt Date: 20250815
  Transmission Date: 20251021
  Serious: Yes (Other)
  Sender: PFIZER
  Company Number: US-PFIZER INC-2019321914

PATIENT
  Age: 33 Year
  Sex: Female

DRUGS (4)
  1. DOCETAXEL [Suspect]
     Active Substance: DOCETAXEL
     Indication: Nasopharyngeal cancer
  2. CISPLATIN [Suspect]
     Active Substance: CISPLATIN
     Indication: Nasopharyngeal cancer
  3. CETUXIMAB [Suspect]
     Active Substance: CETUXIMAB
     Indication: Nasopharyngeal cancer
  4. CETUXIMAB [Suspect]
     Active Substance: CETUXIMAB

REACTIONS (2)
  - Lacrimation increased [Recovered/Resolved]
  - Periorbital dermatitis [Recovering/Resolving]
